FAERS Safety Report 6814012-1 (Version None)
Quarter: 2010Q2

REPORT INFORMATION
  Report Type: 
  Country: None (occurrence: None)
  Receive Date: 20100628
  Receipt Date: 20100621
  Transmission Date: 20101027
  Serious: Yes (Hospitalization)
  Sender: FDA-Public Use
  Company Number: US-1182319

PATIENT
  Sex: Female
  Weight: 13.1543 kg

DRUGS (2)
  1. CIPRODEX [Suspect]
     Dosage: (2 GTT TID QD OPHTHALMIC)
     Route: 047
     Dates: start: 20080501, end: 20080501
  2. CIPROFLAXACIN [Suspect]
     Dosage: ()

REACTIONS (6)
  - BRAIN ABSCESS [None]
  - EYE DISCHARGE [None]
  - EYE SWELLING [None]
  - MEDICATION ERROR [None]
  - PERIORBITAL CELLULITIS [None]
  - WRONG DRUG ADMINISTERED [None]
